FAERS Safety Report 9207465 (Version 1)
Quarter: 2013Q2

REPORT INFORMATION
  Report Type: Spontaneous
  Country: DE (occurrence: DE)
  Receive Date: 20130403
  Receipt Date: 20130403
  Transmission Date: 20140414
  Serious: Yes (Other)
  Sender: FDA-Public Use
  Company Number: DE-ROCHE-1202055

PATIENT
  Sex: Male
  Weight: 64.4 kg

DRUGS (3)
  1. XELODA [Suspect]
     Indication: SMALL INTESTINE CARCINOMA
     Route: 048
     Dates: start: 20120910
  2. XELODA [Suspect]
     Route: 048
     Dates: start: 20121203
  3. OXALIPLATIN [Concomitant]

REACTIONS (1)
  - Diabetes mellitus [Unknown]
